FAERS Safety Report 8022007-8 (Version None)
Quarter: 2012Q1

REPORT INFORMATION
  Report Type: 
  Country: None (occurrence: None)
  Receive Date: 20120104
  Receipt Date: 20111227
  Transmission Date: 20120608
  Serious: Yes (Hospitalization, Other)
  Sender: FDA-Public Use
  Company Number: US-BAXTER-2011BH034526

PATIENT
  Age: 88 Year
  Sex: Female
  Weight: 61 kg

DRUGS (18)
  1. FEIBA [Suspect]
     Route: 042
     Dates: start: 20111013, end: 20111028
  2. FEIBA [Suspect]
     Indication: HAEMOPHILIA
     Route: 042
     Dates: start: 20111013, end: 20111028
  3. FEIBA [Suspect]
     Route: 042
     Dates: start: 20111029, end: 20111031
  4. HALDOL [Concomitant]
     Indication: PRODUCT USED FOR UNKNOWN INDICATION
     Route: 065
  5. FEIBA [Suspect]
     Indication: HAEMORRHAGE
     Route: 042
     Dates: start: 20111013, end: 20111028
  6. ASPIRIN [Concomitant]
     Indication: PRODUCT USED FOR UNKNOWN INDICATION
     Route: 065
  7. FEIBA [Suspect]
     Route: 042
     Dates: start: 20111029, end: 20111031
  8. FEIBA [Suspect]
     Route: 042
     Dates: start: 20111029, end: 20111031
  9. FEIBA [Suspect]
     Route: 042
     Dates: start: 20111029, end: 20111031
  10. MEGACE [Concomitant]
     Indication: PRODUCT USED FOR UNKNOWN INDICATION
     Route: 065
  11. FEIBA [Suspect]
     Route: 042
     Dates: start: 20111013, end: 20111028
  12. INSULIN [Concomitant]
     Indication: DIABETES MELLITUS
     Route: 065
  13. FEIBA [Suspect]
     Route: 042
     Dates: start: 20111013, end: 20111028
  14. PERCOCET [Concomitant]
     Indication: PRODUCT USED FOR UNKNOWN INDICATION
     Route: 065
  15. FEIBA [Suspect]
     Route: 042
     Dates: start: 20111029, end: 20111031
  16. ZOCOR [Concomitant]
     Indication: PRODUCT USED FOR UNKNOWN INDICATION
     Route: 065
  17. FEIBA [Suspect]
     Route: 042
     Dates: start: 20111013, end: 20111028
  18. FEIBA [Suspect]
     Route: 042
     Dates: start: 20111029, end: 20111031

REACTIONS (1)
  - DRUG EFFECT DECREASED [None]
